FAERS Safety Report 6346089-4 (Version None)
Quarter: 2009Q3

REPORT INFORMATION
  Report Type: 
  Country: None (occurrence: None)
  Receive Date: 20090909
  Receipt Date: 20090828
  Transmission Date: 20100115
  Serious: Yes (Other)
  Sender: FDA-Public Use
  Company Number: US-PFIZER INC-2009264409

PATIENT
  Sex: Female
  Weight: 82.993 kg

DRUGS (7)
  1. LYRICA [Suspect]
     Indication: NEURALGIA
     Dosage: 50 MG, 2X/DAY
     Route: 048
     Dates: start: 20090701
  2. ESTRATEST [Concomitant]
     Dosage: UNK
  3. MEDROXYPROGESTERONE [Concomitant]
     Dosage: UNK
  4. PRAVASTATIN [Concomitant]
     Indication: BLOOD CHOLESTEROL INCREASED
     Dosage: UNK
  5. LORAZEPAM [Concomitant]
     Dosage: UNK
  6. TEMAZEPAM [Concomitant]
     Dosage: 30 MG, 1X/DAY
  7. FIORICET [Concomitant]
     Dosage: UNK

REACTIONS (3)
  - HEPATIC STEATOSIS [None]
  - OEDEMA PERIPHERAL [None]
  - WEIGHT INCREASED [None]
